FAERS Safety Report 7965351-2 (Version None)
Quarter: 2011Q4

REPORT INFORMATION
  Report Type: 
  Country: None (occurrence: None)
  Receive Date: 20111208
  Receipt Date: 20111202
  Transmission Date: 20120403
  Serious: Yes (Hospitalization)
  Sender: FDA-Public Use
  Company Number: PHHO2011US020400

PATIENT
  Age: 63 Year
  Sex: Male
  Weight: 56.2 kg

DRUGS (9)
  1. ENOXAPARIN [Concomitant]
  2. SENNA [Concomitant]
  3. OXYCONTIN [Concomitant]
     Dosage: UNK
  4. MULTI-VITAMINS [Concomitant]
  5. ZOFRAN [Concomitant]
  6. FOLFOX-6 [Concomitant]
     Indication: COLORECTAL CANCER
     Dosage: EVERY TWO WEEKS
  7. AFINITOR [Suspect]
     Indication: COLORECTAL CANCER
     Dosage: 10 MG, QD
     Dates: start: 20110816
  8. AVASTIN [Concomitant]
     Indication: COLORECTAL CANCER
     Dosage: EVERY TWO WEEKS
  9. CORTAB [Concomitant]

REACTIONS (1)
  - SMALL INTESTINAL OBSTRUCTION [None]
